FAERS Safety Report 16995556 (Version 2)
Quarter: 2019Q4

REPORT INFORMATION
  Report Type: Report from Study
  Country: None (occurrence: US)
  Receive Date: 20191105
  Receipt Date: 20191206
  Transmission Date: 20200122
  Serious: Yes (Hospitalization)
  Sender: FDA-Public Use
  Company Number: US-ABBVIE-19K-163-2989209-00

PATIENT
  Age: 75 Year
  Sex: Male

DRUGS (2)
  1. VENCLEXTA [Suspect]
     Active Substance: VENETOCLAX
     Route: 048
     Dates: start: 2019
  2. VENCLEXTA [Suspect]
     Active Substance: VENETOCLAX
     Indication: CHRONIC LYMPHOCYTIC LEUKAEMIA
     Route: 048
     Dates: start: 20191010, end: 2019

REACTIONS (7)
  - Sepsis [Unknown]
  - Gait disturbance [Unknown]
  - Hypophagia [Unknown]
  - Infection [Unknown]
  - Muscle spasms [Unknown]
  - Hospitalisation [Unknown]
  - Nausea [Unknown]

NARRATIVE: CASE EVENT DATE: 2019
